FAERS Safety Report 16334983 (Version 1)
Quarter: 2019Q2

REPORT INFORMATION
  Report Type: Report from Study
  Country: None (occurrence: DE)
  Receive Date: 20190520
  Receipt Date: 20190520
  Transmission Date: 20190711
  Serious: Yes (Hospitalization)
  Sender: FDA-Public Use
  Company Number: DE-ABBVIE-19K-062-2669096-00

PATIENT
  Age: 69 Year
  Sex: Female

DRUGS (10)
  1. HUMIRA [Suspect]
     Active Substance: ADALIMUMAB
     Indication: ANKYLOSING SPONDYLITIS
     Route: 058
     Dates: start: 2012, end: 2017
  2. HUMIRA [Suspect]
     Active Substance: ADALIMUMAB
     Route: 058
     Dates: start: 201904, end: 201904
  3. BELOC ZOK [Concomitant]
     Active Substance: METOPROLOL SUCCINATE
     Indication: HYPERTENSION
     Route: 048
  4. VITAMIN B12 [Concomitant]
     Active Substance: CYANOCOBALAMIN
     Indication: PRODUCT USED FOR UNKNOWN INDICATION
  5. HUMIRA [Suspect]
     Active Substance: ADALIMUMAB
     Route: 058
     Dates: start: 201811, end: 201901
  6. HUMIRA [Suspect]
     Active Substance: ADALIMUMAB
     Route: 058
     Dates: start: 201901, end: 201904
  7. TORASEMID [Concomitant]
     Active Substance: TORSEMIDE
     Indication: PRODUCT USED FOR UNKNOWN INDICATION
     Route: 048
  8. MAGNESIUM VERLA [Concomitant]
     Active Substance: MAGNESIUM
     Indication: PRODUCT USED FOR UNKNOWN INDICATION
     Route: 048
  9. DEKRISTOL [Concomitant]
     Active Substance: CHOLECALCIFEROL
     Indication: PRODUCT USED FOR UNKNOWN INDICATION
     Route: 048
  10. VALSACOR [Concomitant]
     Active Substance: VALSARTAN
     Indication: HYPERTENSION
     Route: 048

REACTIONS (20)
  - Pulmonary oedema [Recovered/Resolved]
  - White blood cell count increased [Unknown]
  - Aphonia [Recovered/Resolved]
  - Oral pain [Recovered/Resolved]
  - Pneumonia [Recovered/Resolved]
  - Iritis [Recovering/Resolving]
  - Glossodynia [Recovered/Resolved]
  - Malaise [Recovering/Resolving]
  - C-reactive protein increased [Recovering/Resolving]
  - Gastrointestinal disorder [Recovered/Resolved]
  - Mouth swelling [Recovered/Resolved]
  - Pain in extremity [Recovering/Resolving]
  - Pulpitis dental [Recovered/Resolved]
  - Infection [Recovered/Resolved]
  - Infection [Unknown]
  - Escherichia infection [Recovered/Resolved]
  - Swollen tongue [Recovered/Resolved]
  - Nausea [Recovered/Resolved]
  - Pyelitis [Recovered/Resolved]
  - Urinary tract infection [Recovering/Resolving]

NARRATIVE: CASE EVENT DATE: 2012
